FAERS Safety Report 12565238 (Version 3)
Quarter: 2016Q3

REPORT INFORMATION
  Report Type: Spontaneous
  Country: US (occurrence: US)
  Receive Date: 20160718
  Receipt Date: 20160831
  Transmission Date: 20161109
  Serious: No
  Sender: FDA-Public Use
  Company Number: US-PFIZER INC-2016346745

PATIENT
  Age: 85 Year
  Sex: Female
  Weight: 61.23 kg

DRUGS (13)
  1. ADVIL [Suspect]
     Active Substance: IBUPROFEN
     Indication: PAIN
     Dosage: 200 MG, 1X/DAY (LIQUIGEL, ONCE AT 1:30 THIS MORNING)
     Route: 048
     Dates: start: 20160714
  2. CARVEDILOL. [Concomitant]
     Active Substance: CARVEDILOL
     Indication: CARDIAC DISORDER
     Dosage: 6.25 MG, 2X/DAY (ONE IN THE MORNING AND ONE AT NIGHT)
     Route: 048
  3. TEMAZEPAM. [Concomitant]
     Active Substance: TEMAZEPAM
     Dosage: 15 MG, ONE A DAY
     Route: 048
  4. VITAMIN D [Concomitant]
     Active Substance: CHOLECALCIFEROL
     Indication: ASTHENIA
     Dosage: 2000 IU, 1X/DAY (MORNING)
     Route: 048
  5. OMEPRAZOLE. [Concomitant]
     Active Substance: OMEPRAZOLE
     Dosage: 20 MG, DAILY
     Route: 048
  6. DIPHENHYDRAMINE. [Concomitant]
     Active Substance: DIPHENHYDRAMINE
     Indication: EYE PRURITUS
     Dosage: 50 MG, SINGLE
  7. IMIPRAMINE [Concomitant]
     Active Substance: IMIPRAMINE
     Indication: INSOMNIA
  8. OMEPRAZOLE. [Concomitant]
     Active Substance: OMEPRAZOLE
     Indication: BLOOD CHOLESTEROL ABNORMAL
     Dosage: 20 MG, 1X/DAY
  9. ALPRAZOLAM. [Concomitant]
     Active Substance: ALPRAZOLAM
     Indication: NERVOUSNESS
     Dosage: 0.25 MG, UNK (ONLY TAKES IT ONCE OR TWICE A DAY) (UP TO 3 TIMES A DAY)
     Route: 048
  10. ALENDRONATE [Concomitant]
     Active Substance: ALENDRONATE SODIUM
     Indication: BACK DISORDER
     Dosage: 35 MG, WEEKLY
     Route: 048
  11. ADVIL [Suspect]
     Active Substance: IBUPROFEN
     Indication: ABDOMINAL PAIN
  12. IMIPRAMINE [Concomitant]
     Active Substance: IMIPRAMINE
     Indication: SLEEP DISORDER
     Dosage: 25 MG, 1X/DAY (ONCE AT BED TIME) (ONE EACH NIGHT)
     Route: 048
  13. POTASSIUM [Concomitant]
     Active Substance: POTASSIUM

REACTIONS (4)
  - Burning sensation [Recovered/Resolved]
  - Foreign body [Recovered/Resolved]
  - Dysgeusia [Recovering/Resolving]
  - Dysphagia [Recovered/Resolved]

NARRATIVE: CASE EVENT DATE: 20160714
